FAERS Safety Report 8372387-9 (Version None)
Quarter: 2012Q2

REPORT INFORMATION
  Report Type: 
  Country: None (occurrence: None)
  Receive Date: 20120521
  Receipt Date: 20120516
  Transmission Date: 20120825
  Serious: Yes (Other)
  Sender: FDA-Public Use
  Company Number: US-PFIZER INC-2012119398

PATIENT
  Sex: Female
  Weight: 84.807 kg

DRUGS (11)
  1. ASPIRIN [Concomitant]
     Dosage: 325 MG, 1X/DAY
  2. METOPROLOL [Concomitant]
     Indication: CARDIAC DISORDER
     Dosage: 50 MG, UNK
  3. ZOLOFT [Suspect]
     Indication: DEPRESSION
     Dosage: 100 MG, DAILY
     Route: 048
     Dates: end: 20120401
  4. NASONEX [Concomitant]
     Indication: ASTHMA
     Dosage: UNK
  5. LIPITOR [Suspect]
     Indication: BLOOD CHOLESTEROL INCREASED
     Dosage: 10 MG, DAILY
  6. CLONIDINE [Concomitant]
     Indication: HYPERTENSION
     Dosage: 0.15 MG, DAILY
     Route: 048
  7. LODINE [Concomitant]
     Indication: HYPERTENSION
     Dosage: UNK
  8. PULMICORT [Concomitant]
     Indication: ASTHMA
     Dosage: UNK
  9. LASIX [Concomitant]
     Indication: THYROID DISORDER
     Dosage: UNK
  10. PROAIR HFA [Concomitant]
     Indication: ASTHMA
     Dosage: UNK
  11. LIPITOR [Suspect]
     Dosage: 20 MG, DAILY

REACTIONS (1)
  - DEPRESSION [None]
